FAERS Safety Report 5571624-3 (Version None)
Quarter: 2007Q4

REPORT INFORMATION
  Report Type: 
  Country: None (occurrence: None)
  Receive Date: 20071221
  Receipt Date: 20070926
  Transmission Date: 20080405
  Serious: No
  Sender: FDA-Public Use
  Company Number: US-BRISTOL-MYERS SQUIBB COMPANY-13921093

PATIENT
  Age: 61 Year
  Sex: Female
  Weight: 114 kg

DRUGS (5)
  1. SPRYCEL [Suspect]
     Indication: CHRONIC MYELOID LEUKAEMIA
     Dosage: DOSE REDUCED TO 50 MG, THEN 20 MG EVERY OTHER DAY AND THEN TO 20 MG EVERY 3RD DAY.
     Dates: start: 20070523
  2. PREDNISONE [Concomitant]
  3. SPIRONOLACTONE [Concomitant]
  4. CLARITIN [Concomitant]
  5. NEURONTIN [Concomitant]

REACTIONS (1)
  - NEUTROPENIA [None]
